FAERS Safety Report 14268483 (Version 1)
Quarter: 2017Q4

REPORT INFORMATION
  Report Type: Spontaneous
  Country: US (occurrence: US)
  Receive Date: 20171211
  Receipt Date: 20171211
  Transmission Date: 20180321
  Serious: Yes (Other)
  Sender: FDA-Public Use
  Company Number: US-GLAXOSMITHKLINE-US2017189183

PATIENT
  Age: 77 Year
  Sex: Female

DRUGS (1)
  1. TRIAMTERENE AND HYDROCHLOROTHIAZIDE [Suspect]
     Active Substance: HYDROCHLOROTHIAZIDE\TRIAMTERENE
     Indication: FLUID RETENTION
     Dosage: 1 MG, QD
     Route: 048
     Dates: start: 201711, end: 201712

REACTIONS (7)
  - Peripheral swelling [Recovered/Resolved]
  - Bladder discomfort [Recovered/Resolved]
  - Urinary retention [Recovered/Resolved]
  - Joint swelling [Recovered/Resolved]
  - Micturition urgency [Not Recovered/Not Resolved]
  - Urethral pain [Recovered/Resolved]
  - Drug ineffective [Recovered/Resolved]

NARRATIVE: CASE EVENT DATE: 201711
